FAERS Safety Report 8180110-6 (Version None)
Quarter: 2012Q1

REPORT INFORMATION
  Report Type: 
  Country: None (occurrence: None)
  Receive Date: 20120302
  Receipt Date: 20120302
  Transmission Date: 20120608
  Serious: Yes (Other)
  Sender: FDA-Public Use
  Company Number: None

PATIENT
  Age: 63 Year
  Sex: Female
  Weight: 65.77 kg

DRUGS (1)
  1. METHOTREXATE [Suspect]
     Indication: RHEUMATOID ARTHRITIS
     Dosage: 30 MG
     Route: 048
     Dates: start: 20120226, end: 20120226

REACTIONS (10)
  - BLOOD PRESSURE INCREASED [None]
  - WEIGHT DECREASED [None]
  - CHILLS [None]
  - BODY TEMPERATURE DECREASED [None]
  - ABDOMINAL DISTENSION [None]
  - ABDOMINAL PAIN UPPER [None]
  - NAUSEA [None]
  - EPISTAXIS [None]
  - HYPERHIDROSIS [None]
  - TREMOR [None]
